FAERS Safety Report 7950406-9 (Version None)
Quarter: 2011Q4

REPORT INFORMATION
  Report Type: 
  Country: None (occurrence: None)
  Receive Date: 20111130
  Receipt Date: 20111003
  Transmission Date: 20120403
  Serious: Yes (Death)
  Sender: FDA-Public Use
  Company Number: US-ROCHE-1014595

PATIENT
  Sex: Female

DRUGS (10)
  1. KETOROLAC TROMETHAMINE [Suspect]
     Indication: PRODUCT USED FOR UNKNOWN INDICATION
  2. AMBISOME [Concomitant]
  3. FLAGYL [Concomitant]
  4. MYCOPHENOLATE MOFETIL [Suspect]
     Indication: HEART TRANSPLANT
  5. PROGRAF [Suspect]
     Indication: HEART TRANSPLANT
     Route: 065
  6. LINEZOLID [Concomitant]
  7. GANCICLOVIR [Concomitant]
  8. FK463 [Suspect]
     Indication: CANDIDIASIS
     Route: 042
     Dates: start: 20110722, end: 20110812
  9. MEROPENEM [Concomitant]
  10. FLUTICASONE PROPIONATE [Concomitant]

REACTIONS (4)
  - RENAL FAILURE [None]
  - PANCREATITIS HAEMORRHAGIC [None]
  - HEPATIC INFARCTION [None]
  - RESPIRATORY FAILURE [None]
